FAERS Safety Report 4691906-7 (Version None)
Quarter: 2005Q2

REPORT INFORMATION
  Report Type: 
  Country: None (occurrence: None)
  Receive Date: 20050614
  Receipt Date: 20050601
  Transmission Date: 20051028
  Serious: Yes (Other)
  Sender: FDA-Public Use
  Company Number: 2005081925

PATIENT
  Age: 23 Year
  Sex: Female
  Weight: 63.5036 kg

DRUGS (1)
  1. UNISOM [Suspect]
     Indication: SUICIDE ATTEMPT
     Dosage: 5 TABLETS AT ONCE, ORAL
     Route: 048
     Dates: start: 20050601, end: 20050601

REACTIONS (8)
  - DRUG EXPOSURE DURING PREGNANCY [None]
  - FATIGUE [None]
  - FEAR [None]
  - FEELING OF RELAXATION [None]
  - INCORRECT DOSE ADMINISTERED [None]
  - INTENTIONAL MISUSE [None]
  - SOMNOLENCE [None]
  - SUICIDAL IDEATION [None]
